FAERS Safety Report 9155239 (Version 1)
Quarter: 2013Q1

REPORT INFORMATION
  Report Type: Spontaneous
  Country: US (occurrence: US)
  Receive Date: 20130311
  Receipt Date: 20130311
  Transmission Date: 20140127
  Serious: No
  Sender: FDA-Public Use
  Company Number: US-PFIZER INC-2013080979

PATIENT
  Age: 28 Year
  Sex: Female
  Weight: 118 kg

DRUGS (2)
  1. NEURONTIN [Suspect]
     Indication: FIBROMYALGIA
     Dosage: 400 MG, 3X/DAY
     Dates: start: 2012, end: 20130303
  2. PROZAC [Concomitant]
     Indication: DEPRESSION
     Dosage: 60 MG, 1X/DAY

REACTIONS (1)
  - Drug ineffective [Unknown]
